FAERS Safety Report 7076242-6 (Version None)
Quarter: 2010Q4

REPORT INFORMATION
  Report Type: 
  Country: None (occurrence: None)
  Receive Date: 20101101
  Receipt Date: 20101020
  Transmission Date: 20110411
  Serious: Yes (Other)
  Sender: FDA-Public Use
  Company Number: NL-JNJFOC-20101006009

PATIENT
  Age: 22 Year
  Sex: Female

DRUGS (2)
  1. TRISPORAL [Suspect]
     Indication: VULVOVAGINAL MYCOTIC INFECTION
     Route: 065
  2. CYPROTERONE/ETHINYL ESTRADIOL [Concomitant]
     Indication: ILL-DEFINED DISORDER

REACTIONS (7)
  - AGITATION [None]
  - ANXIETY [None]
  - DYSPNOEA [None]
  - FATIGUE [None]
  - HYPOAESTHESIA [None]
  - MUSCLE SPASMS [None]
  - PANIC ATTACK [None]
